FAERS Safety Report 8448850-9 (Version None)
Quarter: 2012Q2

REPORT INFORMATION
  Report Type: 
  Country: None (occurrence: None)
  Receive Date: 20120619
  Receipt Date: 20120605
  Transmission Date: 20120825
  Serious: Yes (Hospitalization, Other)
  Sender: FDA-Public Use
  Company Number: JP-VERTEX PHARMACEUTICALS INC.-AE-2012-004842

PATIENT
  Age: 65 Year
  Sex: Male

DRUGS (12)
  1. TELAVIC (TELAPREVIR) [Suspect]
     Route: 048
     Dates: start: 20120327, end: 20120327
  2. REBETOL [Concomitant]
     Route: 048
     Dates: start: 20120328, end: 20120328
  3. FAMOTIDINE [Concomitant]
     Route: 048
     Dates: start: 20120202
  4. TELAVIC (TELAPREVIR) [Suspect]
     Indication: HEPATITIS C
     Route: 048
     Dates: start: 20120124, end: 20120201
  5. REBETOL [Concomitant]
     Indication: HEPATITIS C
     Route: 048
     Dates: start: 20120124, end: 20120326
  6. TELAVIC (TELAPREVIR) [Suspect]
     Route: 048
     Dates: start: 20120203, end: 20120326
  7. REBETOL [Concomitant]
     Route: 048
     Dates: start: 20120327, end: 20120327
  8. TELAVIC (TELAPREVIR) [Suspect]
     Route: 048
     Dates: start: 20120202, end: 20120202
  9. PEG-INTRON [Concomitant]
     Indication: HEPATITIS C
     Route: 058
     Dates: start: 20120124, end: 20120327
  10. PEG-INTRON [Concomitant]
     Route: 058
     Dates: start: 20120410, end: 20120410
  11. REBETOL [Concomitant]
     Route: 048
     Dates: start: 20120410, end: 20120413
  12. LECICARBON [Concomitant]
     Route: 054
     Dates: start: 20120404, end: 20120404

REACTIONS (9)
  - ERYTHEMA [None]
  - XERODERMA [None]
  - STEVENS-JOHNSON SYNDROME [None]
  - DIARRHOEA [None]
  - DEPRESSIVE SYMPTOM [None]
  - HAEMOGLOBIN DECREASED [None]
  - LISTLESS [None]
  - WHITE BLOOD CELL COUNT INCREASED [None]
  - ERYTHEMA MULTIFORME [None]
